FAERS Safety Report 9425357 (Version 2)
Quarter: 2013Q3

REPORT INFORMATION
  Report Type: Report from Study
  Country: US (occurrence: US)
  Receive Date: 20130729
  Receipt Date: 20130809
  Transmission Date: 20140515
  Serious: Yes (Other)
  Sender: FDA-Public Use
  Company Number: US-ABBOTT-13P-163-1123209-00

PATIENT
  Sex: Female

DRUGS (1)
  1. HUMIRA [Suspect]
     Indication: PSORIASIS
     Dates: start: 201004

REACTIONS (4)
  - Biliary cyst [Not Recovered/Not Resolved]
  - Arthralgia [Unknown]
  - Fatigue [Unknown]
  - Blood cholesterol increased [Unknown]
